FAERS Safety Report 4874852-5 (Version None)
Quarter: 2006Q1

REPORT INFORMATION
  Report Type: 
  Country: None (occurrence: None)
  Receive Date: 20060104
  Receipt Date: 20051222
  Transmission Date: 20060701
  Serious: Yes (Congenital Anomaly)
  Sender: FDA-Public Use
  Company Number: 2005173472

PATIENT
  Sex: Female

DRUGS (2)
  1. SERTRALINE [Suspect]
     Dosage: PLACENTAL
     Route: 064
  2. LABETALOL HCL [Concomitant]

REACTIONS (2)
  - COARCTATION OF THE AORTA [None]
  - DRUG EXPOSURE DURING PREGNANCY [None]
